FAERS Safety Report 9405053 (Version 1)
Quarter: 2013Q3

REPORT INFORMATION
  Report Type: Spontaneous
  Country: US (occurrence: None)
  Receive Date: 20130715
  Receipt Date: 20130715
  Transmission Date: 20140515
  Serious: Yes (Hospitalization)
  Sender: FDA-Public Use
  Company Number: AG-2013-014613

PATIENT
  Age: 84 Year
  Sex: Male
  Weight: 76.3 kg

DRUGS (3)
  1. CHLORAMBUCIL (CHLORAMBUCIL) (UNKNOWN) [Suspect]
     Indication: CHRONIC LYMPHOCYTIC LEUKAEMIA
     Dosage: 3.4286MG CYCLIC (6MILLIGRAM, 2 IN)
     Dates: start: 20121011
  2. G-CSF (COLONY STIMULATING FACTORS) (INJECTION) [Concomitant]
  3. WARFARIN (WARFARIN) [Concomitant]

REACTIONS (6)
  - Cellulitis staphylococcal [None]
  - Malaise [None]
  - Joint injury [None]
  - Febrile neutropenia [None]
  - Arthritis infective [None]
  - Rhinovirus infection [None]
